FAERS Safety Report 11644246 (Version 1)
Quarter: 2015Q4

REPORT INFORMATION
  Report Type: Spontaneous
  Country: US (occurrence: None)
  Receive Date: 20151019
  Receipt Date: 20151019
  Transmission Date: 20160304
  Serious: Yes (Disabling, Other)
  Sender: FDA-Public Use
  Company Number: None

PATIENT
  Age: 37 Year
  Sex: Female
  Weight: 63.5 kg

DRUGS (1)
  1. CIPROFLOXACIN HCL [Suspect]
     Active Substance: CIPROFLOXACIN HYDROCHLORIDE
     Indication: CYSTITIS
     Route: 048
     Dates: start: 20151012, end: 20151014

REACTIONS (17)
  - Eating disorder [None]
  - Crying [None]
  - Tendonitis [None]
  - Nightmare [None]
  - Anxiety [None]
  - Depression [None]
  - Nausea [None]
  - Diarrhoea [None]
  - Hyperaesthesia [None]
  - Pain [None]
  - Thinking abnormal [None]
  - Product taste abnormal [None]
  - Suicidal ideation [None]
  - Pyrexia [None]
  - Hypophagia [None]
  - Abnormal behaviour [None]
  - Quality of life decreased [None]

NARRATIVE: CASE EVENT DATE: 20151012
